FAERS Safety Report 17110431 (Version 1)
Quarter: 2019Q4

REPORT INFORMATION
  Report Type: Spontaneous
  Country: SE (occurrence: SE)
  Receive Date: 20191204
  Receipt Date: 20191204
  Transmission Date: 20200122
  Serious: Yes (Hospitalization)
  Sender: FDA-Public Use
  Company Number: SE-PFIZER INC-2019521640

PATIENT
  Age: 14 Year
  Sex: Female

DRUGS (2)
  1. LERGIGAN [PROMETHAZINE HYDROCHLORIDE] [Suspect]
     Active Substance: PROMETHAZINE HYDROCHLORIDE
     Dosage: 500 MG, UNK
     Route: 048
     Dates: start: 20180118, end: 20180118
  2. SERTRALINE HCL [Suspect]
     Active Substance: SERTRALINE HYDROCHLORIDE
     Dosage: 400 MG
     Route: 048
     Dates: start: 20180118, end: 20180118

REACTIONS (5)
  - Headache [Unknown]
  - Intentional self-injury [Unknown]
  - Dizziness [Unknown]
  - Intentional overdose [Unknown]
  - Chest pain [Unknown]

NARRATIVE: CASE EVENT DATE: 20180118
